FAERS Safety Report 23456478 (Version 3)
Quarter: 2024Q1

REPORT INFORMATION
  Report Type: Spontaneous
  Country: US (occurrence: US)
  Receive Date: 20240130
  Receipt Date: 20240311
  Transmission Date: 20240409
  Serious: No
  Sender: FDA-Public Use
  Company Number: US-PFIZER INC-202400012802

PATIENT
  Age: 17 Year
  Sex: Male
  Weight: 64.41 kg

DRUGS (1)
  1. GENOTROPIN [Suspect]
     Active Substance: SOMATROPIN
     Indication: Growth hormone deficiency
     Dosage: JUST ONE TIME EVERY NIGHT, SO SEVEN TIMES A WEEK

REACTIONS (2)
  - Incorrect dose administered by device [Unknown]
  - Device information output issue [Unknown]
